FAERS Safety Report 21562949 (Version 1)
Quarter: 2022Q4

REPORT INFORMATION
  Report Type: Spontaneous
  Country: US (occurrence: US)
  Receive Date: 20221107
  Receipt Date: 20221107
  Transmission Date: 20230113
  Serious: No
  Sender: FDA-Public Use
  Company Number: US-002147023-NVSC2022US250265

PATIENT
  Sex: Female

DRUGS (1)
  1. LEQVIO [Suspect]
     Active Substance: INCLISIRAN SODIUM
     Indication: Product used for unknown indication
     Dosage: 284 MG (ONE SINGLE DOSE, VIAL)
     Route: 058

REACTIONS (5)
  - Hypersensitivity [Unknown]
  - Erythema [Unknown]
  - Peripheral swelling [Unknown]
  - Rhinorrhoea [Unknown]
  - Feeling hot [Unknown]
